FAERS Safety Report 7253869-X (Version None)
Quarter: 2011Q1

REPORT INFORMATION
  Report Type: 
  Country: None (occurrence: None)
  Receive Date: 20110129
  Receipt Date: 20100420
  Transmission Date: 20110831
  Serious: No
  Sender: FDA-Public Use
  Company Number: US-ABBOTT-10P-163-0640878-00

PATIENT
  Sex: Female
  Weight: 119.4 kg

DRUGS (10)
  1. HUMIRA [Suspect]
     Indication: RHEUMATOID ARTHRITIS
     Route: 058
     Dates: start: 20100404
  2. LASIX [Concomitant]
     Indication: PRODUCT USED FOR UNKNOWN INDICATION
  3. CELEBREX [Concomitant]
     Indication: RHEUMATOID ARTHRITIS
  4. PLAQUENIL [Concomitant]
     Indication: RHEUMATOID ARTHRITIS
  5. FOLIC ACID [Concomitant]
     Indication: PRODUCT USED FOR UNKNOWN INDICATION
  6. GLIPIZIDE [Concomitant]
     Indication: DIABETES MELLITUS
  7. METHOTREXATE [Concomitant]
     Indication: RHEUMATOID ARTHRITIS
     Route: 048
  8. SINGULAIR [Concomitant]
     Indication: ASTHMA
  9. JANUVIA [Concomitant]
     Indication: DIABETES MELLITUS
  10. METOPROLOL [Concomitant]
     Indication: CARDIAC DISORDER

REACTIONS (2)
  - SINUSITIS [None]
  - EYE DISCHARGE [None]
